FAERS Safety Report 11942523 (Version 3)
Quarter: 2016Q1

REPORT INFORMATION
  Report Type: Report from Study
  Country: US (occurrence: US)
  Receive Date: 20160125
  Receipt Date: 20160224
  Transmission Date: 20160526
  Serious: Yes (Other)
  Sender: FDA-Public Use
  Company Number: US-AMGEN-USASP2016007369

PATIENT
  Age: 51 Year
  Sex: Female

DRUGS (1)
  1. ENBREL [Suspect]
     Active Substance: ETANERCEPT
     Indication: RHEUMATOID ARTHRITIS
     Dosage: 50 MG, WEEKLY
     Route: 058
     Dates: start: 20160112

REACTIONS (8)
  - Hydrothorax [Unknown]
  - Mixed connective tissue disease [Not Recovered/Not Resolved]
  - Drug hypersensitivity [Unknown]
  - Wheezing [Unknown]
  - Cough [Unknown]
  - Hypoaesthesia [Unknown]
  - Fluid overload [Unknown]
  - Paraesthesia [Unknown]

NARRATIVE: CASE EVENT DATE: 2016
